FAERS Safety Report 15834500 (Version 1)
Quarter: 2019Q1

REPORT INFORMATION
  Report Type: Spontaneous
  Country: US (occurrence: US)
  Receive Date: 20190116
  Receipt Date: 20190116
  Transmission Date: 20190417
  Serious: No
  Sender: FDA-Public Use
  Company Number: US-TEVA-2018-US-992780

PATIENT
  Sex: Female
  Weight: 155 kg

DRUGS (1)
  1. TRAMADOL TEVA [Suspect]
     Active Substance: TRAMADOL
     Indication: PAIN
     Dosage: 300 MILLIGRAM DAILY;
     Route: 065

REACTIONS (1)
  - Drug ineffective [Unknown]
